FAERS Safety Report 24207889 (Version 1)
Quarter: 2024Q3

REPORT INFORMATION
  Report Type: Spontaneous
  Country: JP (occurrence: JP)
  Receive Date: 20240814
  Receipt Date: 20240814
  Transmission Date: 20241017
  Serious: Yes (Other)
  Sender: GENMAB
  Company Number: JP-GENMAB-2024-02863

PATIENT
  Age: 75 Year
  Sex: Male

DRUGS (1)
  1. EPKINLY [Suspect]
     Active Substance: EPCORITAMAB-BYSP
     Indication: Diffuse large B-cell lymphoma refractory
     Dosage: UNK, EPKINLY WAS ADMINISTERED UP TO CYCLE 3 AND WAS WITHDRAWN.
     Route: 065

REACTIONS (1)
  - Diffuse large B-cell lymphoma [Unknown]
